FAERS Safety Report 21872010 (Version 1)
Quarter: 2023Q1

REPORT INFORMATION
  Report Type: Spontaneous
  Country: US (occurrence: None)
  Receive Date: 20230114
  Receipt Date: 20230114
  Transmission Date: 20230417
  Serious: No
  Sender: FDA-Public Use
  Company Number: None

PATIENT
  Age: 7 Year
  Sex: Female
  Weight: 31.5 kg

DRUGS (1)
  1. AZITHROMYCIN [Suspect]
     Active Substance: AZITHROMYCIN
     Indication: Cough
     Dosage: OTHER QUANTITY : 4 ML;?FREQUENCY : DAILY;?
     Route: 048
     Dates: start: 20230112, end: 20230114

REACTIONS (6)
  - Hallucination [None]
  - Insomnia [None]
  - Crying [None]
  - Discomfort [None]
  - Neuropsychiatric symptoms [None]
  - Movement disorder [None]

NARRATIVE: CASE EVENT DATE: 20230113
